FAERS Safety Report 4773001-1 (Version None)
Quarter: 2005Q3

REPORT INFORMATION
  Report Type: 
  Country: None (occurrence: None)
  Receive Date: 20050916
  Receipt Date: 20050906
  Transmission Date: 20060218
  Serious: Yes (Hospitalization, Disabling)
  Sender: FDA-Public Use
  Company Number: 2005097783

PATIENT
  Age: 18 Year
  Sex: Female

DRUGS (1)
  1. CLINDAMYCIN PHOSPHATE [Suspect]
     Indication: PHARYNGITIS
     Dates: start: 20041201

REACTIONS (23)
  - ANTIACETYLCHOLINE RECEPTOR ANTIBODY POSITIVE [None]
  - ANTIBODY TEST POSITIVE [None]
  - BORRELIA BURGDORFERI SEROLOGY POSITIVE [None]
  - CHOKING [None]
  - COORDINATION ABNORMAL [None]
  - CSF MEASLES ANTIBODY POSITIVE [None]
  - CSF TEST ABNORMAL [None]
  - DYSARTHRIA [None]
  - DYSPHAGIA [None]
  - DYSPNOEA [None]
  - EDUCATIONAL PROBLEM [None]
  - GAIT DISTURBANCE [None]
  - HEADACHE [None]
  - HOUSE DUST ALLERGY [None]
  - HYPOAESTHESIA [None]
  - MUSCLE SPASTICITY [None]
  - MYASTHENIC SYNDROME [None]
  - POSITRON EMISSION TOMOGRAM ABNORMAL [None]
  - RHINITIS ALLERGIC [None]
  - SENSATION OF HEAVINESS [None]
  - SPEECH DISORDER [None]
  - VARICELLA ZOSTER VIRUS SEROLOGY POSITIVE [None]
  - VISUAL DISTURBANCE [None]
